FAERS Safety Report 12463813 (Version 1)
Quarter: 2016Q2

REPORT INFORMATION
  Report Type: Spontaneous
  Country: CO (occurrence: CO)
  Receive Date: 20160614
  Receipt Date: 20160614
  Transmission Date: 20160815
  Serious: Yes (Death, Congenital Anomaly)
  Sender: FDA-Public Use
  Company Number: CO-BIOGEN-2016BI00250508

PATIENT

DRUGS (9)
  1. ACETAMINOPHEN. [Concomitant]
     Active Substance: ACETAMINOPHEN
     Indication: PREMEDICATION
     Route: 064
     Dates: start: 20080221, end: 201305
  2. AVONEX [Suspect]
     Active Substance: INTERFERON BETA-1A
     Indication: MATERNAL EXPOSURE TIMING UNSPECIFIED
     Route: 064
     Dates: start: 20080221, end: 201305
  3. AVONEX [Suspect]
     Active Substance: INTERFERON BETA-1A
     Route: 064
     Dates: start: 20130808, end: 201603
  4. ACETAMINOPHEN. [Concomitant]
     Active Substance: ACETAMINOPHEN
     Route: 064
     Dates: start: 201308, end: 20160307
  5. AMANTADINE [Concomitant]
     Active Substance: AMANTADINE
     Indication: FATIGUE
     Route: 064
     Dates: start: 20080418, end: 201305
  6. OMEPRAZOLE. [Concomitant]
     Active Substance: OMEPRAZOLE
     Route: 064
     Dates: start: 201305
  7. AMANTADINE [Concomitant]
     Active Substance: AMANTADINE
     Route: 064
     Dates: start: 201308, end: 20160307
  8. OMEPRAZOLE. [Concomitant]
     Active Substance: OMEPRAZOLE
     Indication: PROPHYLAXIS
     Route: 064
     Dates: start: 200802, end: 201305
  9. FOLIC ACID. [Concomitant]
     Active Substance: FOLIC ACID
     Indication: PRODUCT USED FOR UNKNOWN INDICATION
     Route: 064
     Dates: start: 20080219

REACTIONS (2)
  - Foetal exposure timing unspecified [Recovered/Resolved]
  - Foetal cardiac disorder [Fatal]

NARRATIVE: CASE EVENT DATE: 20160326
